FAERS Safety Report 8907880 (Version 1)
Quarter: 2012Q4

REPORT INFORMATION
  Report Type: 
  Country: DE (occurrence: DE)
  Receive Date: 20121114
  Receipt Date: 20121114
  Transmission Date: 20130627
  Serious: Yes (Other)
  Sender: FDA-Public Use
  Company Number: DE-AMGEN-DEUSP2012071615

PATIENT
  Age: 70 Year
  Sex: Female

DRUGS (2)
  1. ENBREL [Suspect]
     Indication: RHEUMATOID ARTHRITIS
     Dosage: 50 mg, qwk
     Dates: start: 20091104
  2. OPIOIDS [Concomitant]
     Indication: PAIN
     Dosage: every third day one patch
     Route: 062

REACTIONS (3)
  - Gastric ulcer [Not Recovered/Not Resolved]
  - Iron deficiency [Unknown]
  - Scab [Unknown]
